FAERS Safety Report 14332773 (Version 3)
Quarter: 2018Q1

REPORT INFORMATION
  Report Type: Spontaneous
  Country: US (occurrence: US)
  Receive Date: 20171228
  Receipt Date: 20180104
  Transmission Date: 20180509
  Serious: Yes (Other)
  Sender: FDA-Public Use
  Company Number: US-PFIZER INC-2017549917

PATIENT
  Age: 74 Year
  Sex: Female

DRUGS (2)
  1. ROPIVACAINE HYDROCHLORIDE. [Suspect]
     Active Substance: ROPIVACAINE HYDROCHLORIDE
     Indication: NERVE BLOCK
  2. ROPIVACAINE HYDROCHLORIDE. [Suspect]
     Active Substance: ROPIVACAINE HYDROCHLORIDE
     Indication: KNEE ARTHROPLASTY
     Dosage: UNK

REACTIONS (3)
  - Stress cardiomyopathy [Recovered/Resolved]
  - Toxicity to various agents [Recovered/Resolved]
  - Cardiac arrest [Recovered/Resolved]
